FAERS Safety Report 9818299 (Version 1)
Quarter: 2014Q1

REPORT INFORMATION
  Report Type: Spontaneous
  Country: FR (occurrence: FR)
  Receive Date: 20140115
  Receipt Date: 20140115
  Transmission Date: 20141002
  Serious: Yes (Other)
  Sender: FDA-Public Use
  Company Number: FR-JNJFOC-20140104808

PATIENT
  Age: 24 Year
  Sex: Female

DRUGS (1)
  1. REMICADE [Suspect]
     Indication: CROHN^S DISEASE
     Route: 042
     Dates: start: 20130603

REACTIONS (4)
  - Antinuclear antibody positive [Not Recovered/Not Resolved]
  - DNA antibody positive [Not Recovered/Not Resolved]
  - Haematuria [Unknown]
  - Condition aggravated [Not Recovered/Not Resolved]
